FAERS Safety Report 7241081-X (Version None)
Quarter: 2011Q1

REPORT INFORMATION
  Report Type: 
  Country: None (occurrence: None)
  Receive Date: 20110124
  Receipt Date: 20110111
  Transmission Date: 20110831
  Serious: No
  Sender: FDA-Public Use
  Company Number: US-SANOFI-AVENTIS-2010SA074837

PATIENT
  Age: 90 Year
  Sex: Male
  Weight: 79 kg

DRUGS (11)
  1. ZOCOR [Concomitant]
  2. VALSARTAN [Concomitant]
  3. GLUCOSAMINE HYDROCHLORIDE [Concomitant]
  4. METHYLSULFONYLMETHANE [Concomitant]
  5. COLLAGEN [Concomitant]
  6. CHONDROITIN SULFATE [Concomitant]
  7. AMLODIPINE BESILATE [Concomitant]
  8. MULTI-VITAMINS [Concomitant]
  9. DRONEDARONE [Suspect]
     Indication: ATRIAL FIBRILLATION
     Route: 048
     Dates: end: 20101208
  10. METOPROLOL [Concomitant]
  11. WARFARIN [Concomitant]
     Dosage: 38 MG WEEKLY

REACTIONS (1)
  - ALANINE AMINOTRANSFERASE INCREASED [None]
